FAERS Safety Report 5035444-0 (Version None)
Quarter: 2006Q2

REPORT INFORMATION
  Report Type: 
  Country: None (occurrence: None)
  Receive Date: 20060627
  Receipt Date: 20060615
  Transmission Date: 20061013
  Serious: Yes (Hospitalization, Other)
  Sender: FDA-Public Use
  Company Number: US-JNJFOC-20060604086

PATIENT
  Sex: Female
  Weight: 83.92 kg

DRUGS (1)
  1. ORTHO EVRA [Suspect]
     Indication: MENORRHAGIA
     Route: 062
     Dates: start: 20030501

REACTIONS (5)
  - DEEP VEIN THROMBOSIS [None]
  - HYPERCOAGULATION [None]
  - PNEUMONIA [None]
  - PULMONARY EMBOLISM [None]
  - VENOUS STENOSIS [None]
